FAERS Safety Report 7890185-7 (Version None)
Quarter: 2011Q4

REPORT INFORMATION
  Report Type: 
  Country: None (occurrence: None)
  Receive Date: 20111103
  Receipt Date: 20111026
  Transmission Date: 20120403
  Serious: Yes (Other)
  Sender: FDA-Public Use
  Company Number: MY-BAXTER-2011BH034795

PATIENT
  Age: 22 Year
  Sex: Female

DRUGS (17)
  1. FILGRASTIM [Concomitant]
     Indication: ANAPLASTIC LARGE CELL LYMPHOMA T- AND NULL-CELL TYPES
     Route: 058
  2. ACYCLOVIR [Concomitant]
     Indication: PROPHYLAXIS
     Route: 048
  3. ALEMTUZUMAB [Suspect]
     Indication: ANAPLASTIC LARGE CELL LYMPHOMA T- AND NULL-CELL TYPES
     Route: 058
  4. DOXORUBICIN HCL [Suspect]
     Indication: ANAPLASTIC LARGE CELL LYMPHOMA T- AND NULL-CELL TYPES
     Route: 042
  5. DIPHENHYDRAMINE HCL [Concomitant]
     Indication: PROPHYLAXIS
     Route: 042
  6. CYCLOPHOSPHAMIDE [Suspect]
     Indication: ANAPLASTIC LARGE CELL LYMPHOMA T- AND NULL-CELL TYPES
     Route: 042
  7. DEXAMETHASONE [Suspect]
     Indication: ANAPLASTIC LARGE CELL LYMPHOMA T- AND NULL-CELL TYPES
     Route: 065
  8. METHOTREXATE [Suspect]
     Route: 042
  9. VINCRISTINE SULFATE [Suspect]
     Indication: ANAPLASTIC LARGE CELL LYMPHOMA T- AND NULL-CELL TYPES
     Route: 040
  10. CYTARABINE [Suspect]
     Route: 042
  11. LEUCOVORIN CALCIUM [Concomitant]
     Route: 042
  12. METHOTREXATE [Suspect]
     Route: 042
  13. CYTARABINE [Suspect]
     Indication: ANAPLASTIC LARGE CELL LYMPHOMA T- AND NULL-CELL TYPES
     Route: 037
  14. ACETAMINOPHEN [Concomitant]
     Indication: PROPHYLAXIS
     Route: 048
  15. METHOTREXATE [Suspect]
     Indication: ANAPLASTIC LARGE CELL LYMPHOMA T- AND NULL-CELL TYPES
     Route: 037
  16. MESNA [Concomitant]
     Indication: ANAPLASTIC LARGE CELL LYMPHOMA T- AND NULL-CELL TYPES
     Route: 042
  17. LEUCOVORIN CALCIUM [Concomitant]
     Indication: ANAPLASTIC LARGE CELL LYMPHOMA T- AND NULL-CELL TYPES
     Route: 042

REACTIONS (2)
  - NEUTROPENIA [None]
  - CYTOMEGALOVIRUS INFECTION [None]
